FAERS Safety Report 4390618-7 (Version None)
Quarter: 2004Q2

REPORT INFORMATION
  Report Type: 
  Country: None (occurrence: None)
  Receive Date: 20040630
  Receipt Date: 20040623
  Transmission Date: 20050107
  Serious: Yes (Hospitalization)
  Sender: FDA-Public Use
  Company Number: US-SHR-03-012772

PATIENT
  Age: 63 Year
  Sex: Female
  Weight: 64.4 kg

DRUGS (10)
  1. BETASERON [Suspect]
     Indication: MULTIPLE SCLEROSIS
     Dosage: 8 MIU, EVERY 2D, SUBCUTANEOUS
     Route: 058
     Dates: start: 20030301, end: 20030724
  2. NEXIUM [Concomitant]
  3. SIMVASTATIN (ZOCOR) (SIMVASTATIN) [Concomitant]
  4. NORVASC [Concomitant]
  5. KLONOPIN [Concomitant]
  6. ASPIRIN [Concomitant]
  7. MICARDIS (TELMISARTAN) [Concomitant]
  8. NITROFURANTOIN [Concomitant]
  9. LORAZEPAM [Concomitant]
  10. ZYPREXA [Concomitant]

REACTIONS (1)
  - ABNORMAL BEHAVIOUR [None]
